FAERS Safety Report 11967792 (Version 1)
Quarter: 2016Q1

REPORT INFORMATION
  Report Type: Report from Study
  Country: US (occurrence: US)
  Receive Date: 20160127
  Receipt Date: 20160127
  Transmission Date: 20160526
  Serious: No
  Sender: FDA-Public Use
  Company Number: US-ABBVIE-15K-163-1388285-00

PATIENT
  Sex: Female

DRUGS (1)
  1. HUMIRA [Suspect]
     Active Substance: ADALIMUMAB
     Indication: CROHN^S DISEASE
     Route: 065
     Dates: start: 20130705

REACTIONS (12)
  - Glossodynia [Recovered/Resolved]
  - Dry mouth [Not Recovered/Not Resolved]
  - Throat irritation [Unknown]
  - Oral discomfort [Recovered/Resolved]
  - Chronic fatigue syndrome [Unknown]
  - Fasciitis [Unknown]
  - Rapid eye movements sleep abnormal [Recovering/Resolving]
  - Anal stenosis [Unknown]
  - Fibromyalgia [Unknown]
  - Throat irritation [Recovered/Resolved]
  - Dysphonia [Not Recovered/Not Resolved]
  - Sinusitis [Unknown]

NARRATIVE: CASE EVENT DATE: 2014
